FAERS Safety Report 8860555 (Version 1)
Quarter: 2012Q4

REPORT INFORMATION
  Report Type: 
  Country: BR (occurrence: BR)
  Receive Date: 20121025
  Receipt Date: 20121025
  Transmission Date: 20130627
  Serious: Yes (Death, Other)
  Sender: FDA-Public Use
  Company Number: BR-PFIZER INC-2012263799

PATIENT
  Age: 91 Year
  Sex: Male

DRUGS (1)
  1. DETRUSITOL LA [Suspect]
     Dosage: 8 mg (two tablets of 4mg), 2x/day
     Route: 048
     Dates: start: 20100806

REACTIONS (2)
  - Cardiac arrest [Fatal]
  - Renal failure [Fatal]
